FAERS Safety Report 8051895-4 (Version None)
Quarter: 2012Q1

REPORT INFORMATION
  Report Type: 
  Country: None (occurrence: None)
  Receive Date: 20120111
  Receipt Date: 20120105
  Transmission Date: 20120608
  Serious: Yes (Hospitalization)
  Sender: FDA-Public Use
  Company Number: VISP-NO-1201S-0001

PATIENT
  Sex: Male

DRUGS (1)
  1. VISIPAQUE [Suspect]
     Indication: PERIPHERAL ARTERIAL OCCLUSIVE DISEASE
     Dosage: SINGLE DOSE
     Dates: start: 20111219, end: 20111219

REACTIONS (6)
  - FEELING HOT [None]
  - VOMITING [None]
  - EMBOLISM [None]
  - ABASIA [None]
  - DIPLOPIA [None]
  - CEREBROVASCULAR ACCIDENT [None]
